FAERS Safety Report 20042994 (Version 1)
Quarter: 2021Q4

REPORT INFORMATION
  Report Type: Spontaneous
  Country: FR (occurrence: FR)
  Receive Date: 20211108
  Receipt Date: 20211108
  Transmission Date: 20220303
  Serious: Yes (Hospitalization)
  Sender: FDA-Public Use
  Company Number: None

PATIENT
  Age: 35 Year
  Sex: Female

DRUGS (4)
  1. NEXPLANON [Interacting]
     Active Substance: ETONOGESTREL
     Indication: Contraception
     Dosage: UNK
     Route: 058
     Dates: end: 2021
  2. LAMICTAL [Interacting]
     Active Substance: LAMOTRIGINE
     Indication: Epilepsy
     Dosage: TWICE PER DAY
     Route: 048
  3. VALPROATE SODIUM [Interacting]
     Active Substance: VALPROATE SODIUM
     Indication: Epilepsy
     Dosage: TWICE PER DAY, SCORED FILM-COATED TABLET, PROLONGED RELEASE
     Route: 048
  4. TOPIRAMATE [Interacting]
     Active Substance: TOPIRAMATE
     Indication: Epilepsy
     Dosage: TWICE PER DAY
     Route: 048

REACTIONS (1)
  - Pregnancy with implant contraceptive [Recovered/Resolved]

NARRATIVE: CASE EVENT DATE: 20201228
